FAERS Safety Report 6294713-7 (Version None)
Quarter: 2009Q3

REPORT INFORMATION
  Report Type: 
  Country: None (occurrence: None)
  Receive Date: 20090803
  Receipt Date: 20090721
  Transmission Date: 20100115
  Serious: Yes (Disabling, Other)
  Sender: FDA-Public Use
  Company Number: B0584568A

PATIENT
  Age: 66 Year
  Sex: Female

DRUGS (2)
  1. CLENIL MODULITE [Suspect]
     Indication: INFLAMMATION
     Route: 055
     Dates: start: 20090615, end: 20090618
  2. ATENOLOL [Concomitant]
     Indication: HYPERTENSION
     Dosage: 50MG PER DAY
     Route: 048

REACTIONS (2)
  - THROAT IRRITATION [None]
  - URTICARIA [None]
